FAERS Safety Report 20354556 (Version 2)
Quarter: 2022Q1

REPORT INFORMATION
  Report Type: Spontaneous
  Country: CA (occurrence: CA)
  Receive Date: 20220120
  Receipt Date: 20220203
  Transmission Date: 20220423
  Serious: Yes (Other)
  Sender: FDA-Public Use
  Company Number: CA-TEVA-2022-CA-1999078

PATIENT
  Age: 61 Year
  Sex: Female

DRUGS (2)
  1. LETROZOLE [Interacting]
     Active Substance: LETROZOLE
     Indication: Invasive ductal breast carcinoma
     Route: 065
     Dates: start: 20200803
  2. PALBOCICLIB [Interacting]
     Active Substance: PALBOCICLIB
     Indication: Invasive ductal breast carcinoma
     Route: 065
     Dates: start: 20200803, end: 20200824

REACTIONS (3)
  - Drug-induced liver injury [Recovered/Resolved]
  - Hepatocellular injury [Recovered/Resolved]
  - Drug interaction [Unknown]

NARRATIVE: CASE EVENT DATE: 20200817
